FAERS Safety Report 8163523-8 (Version None)
Quarter: 2012Q1

REPORT INFORMATION
  Report Type: 
  Country: None (occurrence: None)
  Receive Date: 20120224
  Receipt Date: 20120213
  Transmission Date: 20120608
  Serious: Yes (Other)
  Sender: FDA-Public Use
  Company Number: JP-ELI_LILLY_AND_COMPANY-JP201202004078

PATIENT
  Sex: Male

DRUGS (3)
  1. KYTRIL [Concomitant]
     Dosage: 2 MG, UNK
  2. DEXAMETHASONE [Concomitant]
     Dosage: 2 MG, UNK
  3. GEMZAR [Suspect]
     Indication: BILE DUCT CANCER RESECTABLE
     Dosage: 800 MG/M2, OTHER
     Route: 042

REACTIONS (1)
  - CHOLANGITIS [None]
